FAERS Safety Report 15153718 (Version 2)
Quarter: 2018Q3

REPORT INFORMATION
  Report Type: Spontaneous
  Country: TR (occurrence: TR)
  Receive Date: 20180717
  Receipt Date: 20180717
  Transmission Date: 20181010
  Serious: Yes (Hospitalization)
  Sender: FDA-Public Use
  Company Number: PHHY2018TR039261

PATIENT
  Age: 65 Year
  Sex: Male

DRUGS (3)
  1. FORADIL COMBI FIX [Suspect]
     Active Substance: BUDESONIDE\FORMOTEROL FUMARATE
     Indication: CHRONIC OBSTRUCTIVE PULMONARY DISEASE
     Route: 065
  2. SALBUTAMOL [Suspect]
     Active Substance: ALBUTEROL
     Indication: CHRONIC OBSTRUCTIVE PULMONARY DISEASE
     Route: 065
  3. THEOPHYLLINE [Suspect]
     Active Substance: THEOPHYLLINE ANHYDROUS
     Indication: CHRONIC OBSTRUCTIVE PULMONARY DISEASE
     Route: 065

REACTIONS (11)
  - Dyspnoea [Unknown]
  - Respiratory acidosis [Unknown]
  - Hypercapnia [Unknown]
  - Oedema peripheral [Unknown]
  - Dizziness [Unknown]
  - Influenza [Unknown]
  - Cough [Unknown]
  - Pyrexia [Unknown]
  - Hypoxia [Not Recovered/Not Resolved]
  - Confusional state [Unknown]
  - Chronic obstructive pulmonary disease [Unknown]
